FAERS Safety Report 19631378 (Version 1)
Quarter: 2021Q3

REPORT INFORMATION
  Report Type: Report from Study
  Country: GB (occurrence: GB)
  Receive Date: 20210729
  Receipt Date: 20210729
  Transmission Date: 20211014
  Serious: Yes (Death, Hospitalization, Other)
  Sender: FDA-Public Use
  Company Number: GB-JNJFOC-20210747435

PATIENT

DRUGS (1)
  1. REMICADE [Suspect]
     Active Substance: INFLIXIMAB
     Indication: ENTEROCOLITIS
     Route: 042

REACTIONS (10)
  - Drug ineffective for unapproved indication [Unknown]
  - Sepsis [Fatal]
  - Off label use [Unknown]
  - Diverticulitis [Fatal]
  - Anaphylactic reaction [Unknown]
  - Bradycardia [Unknown]
  - Squamous cell carcinoma of skin [Unknown]
  - Rash maculo-papular [Unknown]
  - Infection [Unknown]
  - Pneumonia [Fatal]
